FAERS Safety Report 8849843 (Version 1)
Quarter: 2012Q4

REPORT INFORMATION
  Report Type: 
  Country: US (occurrence: US)
  Receive Date: 20121019
  Receipt Date: 20121019
  Transmission Date: 20130627
  Serious: Yes (Hospitalization, Other)
  Sender: FDA-Public Use
  Company Number: US-ELI_LILLY_AND_COMPANY-US201210003183

PATIENT
  Sex: Female

DRUGS (8)
  1. BYETTA [Suspect]
     Indication: TYPE 2 DIABETES MELLITUS
     Dosage: 10 ug, bid
     Route: 058
  2. METFORMIN [Concomitant]
     Indication: TYPE 2 DIABETES MELLITUS
     Dosage: 1000 mg, bid
     Route: 048
  3. GLIMEPIRIDE [Concomitant]
     Indication: TYPE 2 DIABETES MELLITUS
     Dosage: 4 mg, UNK
     Route: 048
  4. SYNTHROID [Concomitant]
     Indication: HYPOTHYROIDISM
     Dosage: 100 mg, qd
     Route: 048
  5. CARVEDILOL [Concomitant]
     Indication: HYPERTENSION
     Dosage: 6.5 mg, bid
     Route: 048
  6. CLONAZEPAM [Concomitant]
     Indication: PANIC ATTACK
     Dosage: UNK, bid
     Route: 048
  7. ELAVIL [Concomitant]
     Indication: DEPRESSION
     Dosage: UNK, each evening
     Route: 048
  8. BYSTOLIC [Concomitant]
     Dosage: 5 mg, UNK
     Route: 048

REACTIONS (4)
  - Meniscus injury [Unknown]
  - Arthralgia [Unknown]
  - Blood glucose decreased [Unknown]
  - Decreased appetite [Unknown]
